FAERS Safety Report 5191527-6 (Version None)
Quarter: 2006Q4

REPORT INFORMATION
  Report Type: 
  Country: None (occurrence: None)
  Receive Date: 20061226
  Receipt Date: 20060510
  Transmission Date: 20070319
  Serious: Yes (Hospitalization)
  Sender: FDA-Public Use
  Company Number: AU-BRISTOL-MYERS SQUIBB COMPANY-13373386

PATIENT
  Age: 62 Year
  Sex: Male
  Weight: 67 kg

DRUGS (6)
  1. VIDEX [Suspect]
     Indication: HIV INFECTION
     Route: 048
     Dates: start: 20060331, end: 20060406
  2. ATAZANAVIR [Concomitant]
     Indication: HIV INFECTION
     Route: 048
     Dates: start: 20050704, end: 20060406
  3. LAMIVUDINE [Concomitant]
     Indication: HIV INFECTION
     Route: 048
     Dates: start: 20050704, end: 20060406
  4. RITONAVIR [Concomitant]
     Indication: HIV INFECTION
     Route: 048
     Dates: start: 20050704, end: 20060406
  5. NORVASC [Concomitant]
     Indication: HYPERTENSION
     Route: 048
     Dates: start: 20040101
  6. MICARDIS [Concomitant]
     Indication: HYPERTENSION
     Route: 048
     Dates: start: 20040101

REACTIONS (1)
  - PANCREATITIS [None]
